FAERS Safety Report 8180676-6 (Version None)
Quarter: 2012Q1

REPORT INFORMATION
  Report Type: 
  Country: None (occurrence: None)
  Receive Date: 20120302
  Receipt Date: 20120227
  Transmission Date: 20120608
  Serious: Yes (Hospitalization, Other)
  Sender: FDA-Public Use
  Company Number: US-CELGENEUS-163-21880-11120341

PATIENT
  Sex: Female

DRUGS (2)
  1. REVLIMID [Suspect]
     Indication: MULTIPLE MYELOMA
     Dosage: 10 MILLIGRAM
     Route: 048
     Dates: start: 20080609
  2. AUGMENTIN '125' [Concomitant]
     Route: 065

REACTIONS (4)
  - MENTAL STATUS CHANGES [None]
  - CARDIAC DISORDER [None]
  - URINARY TRACT INFECTION [None]
  - CONFUSIONAL STATE [None]
